FAERS Safety Report 8822225 (Version 3)
Quarter: 2012Q4

REPORT INFORMATION
  Report Type: 
  Country: US (occurrence: US)
  Receive Date: 20121003
  Receipt Date: 20121221
  Transmission Date: 20130627
  Serious: No
  Sender: FDA-Public Use
  Company Number: US-VERTEX PHARMACEUTICAL INC.-2012-020753

PATIENT
  Age: 49 Year
  Sex: Male

DRUGS (11)
  1. VX-950 (TELAPREVIR) [Suspect]
     Indication: HEPATITIS C
     Dosage: 750 mg, tid
     Route: 048
  2. PEG-INTRON [Suspect]
     Indication: HEPATITIS C
     Dosage: 120 ?g,
  3. RIBAVIRIN [Suspect]
     Indication: HEPATITIS C
     Dosage: 600 UNK, UNK
  4. RIBAVIRIN [Suspect]
     Dosage: 400 UNK, UNK
  5. ADVAIR DISKU AER [Concomitant]
     Dosage: 500/50
  6. COMBIVENT AER [Concomitant]
  7. ASPIRIN ADLT [Concomitant]
     Dosage: 81 mg, UNK
  8. PROCHLORPERAZ [Concomitant]
     Dosage: 10 mg, UNK
  9. ONDANSETRON [Concomitant]
     Dosage: 8 mg, UNK
  10. TRAZODONE [Concomitant]
     Dosage: 50 mg, UNK
  11. CITALOPRAM [Concomitant]
     Dosage: 10 mg, UNK

REACTIONS (12)
  - Influenza like illness [Unknown]
  - Tremor [Unknown]
  - Anxiety [Unknown]
  - Tachyphrenia [Unknown]
  - Pallor [Unknown]
  - Psychiatric symptom [Unknown]
  - Chills [Unknown]
  - Rash pruritic [Unknown]
  - Haemoglobin decreased [Unknown]
  - Diarrhoea [Unknown]
  - Vomiting [Unknown]
  - Nausea [Unknown]
